FAERS Safety Report 15642238 (Version 1)
Quarter: 2018Q4

REPORT INFORMATION
  Report Type: Spontaneous
  Country: US (occurrence: US)
  Receive Date: 20181121
  Receipt Date: 20181121
  Transmission Date: 20190205
  Serious: Yes (Hospitalization)
  Sender: FDA-Public Use
  Company Number: US-JNJFOC-20181122218

PATIENT
  Age: 35 Year
  Sex: Male

DRUGS (1)
  1. INVOKANA [Suspect]
     Active Substance: CANAGLIFLOZIN
     Indication: TYPE 2 DIABETES MELLITUS
     Route: 048
     Dates: start: 20151027

REACTIONS (6)
  - Toe amputation [Unknown]
  - Diabetic foot infection [Unknown]
  - Cellulitis [Unknown]
  - Osteomyelitis acute [Unknown]
  - Foot amputation [Unknown]
  - Necrosis [Unknown]

NARRATIVE: CASE EVENT DATE: 201706
